FAERS Safety Report 6654701-5 (Version None)
Quarter: 2010Q1

REPORT INFORMATION
  Report Type: 
  Country: None (occurrence: None)
  Receive Date: 20100326
  Receipt Date: 20100322
  Transmission Date: 20100710
  Serious: Yes (Death)
  Sender: FDA-Public Use
  Company Number: US-GILEAD-2010-0028072

PATIENT
  Sex: Male

DRUGS (8)
  1. LETAIRIS [Suspect]
     Indication: COR PULMONALE CHRONIC
     Route: 048
     Dates: start: 20081205, end: 20100315
  2. LASIX [Concomitant]
  3. THEOPHYLLINE [Concomitant]
  4. OXANDROLONE [Concomitant]
  5. NEXIUM [Concomitant]
  6. ZANTAC [Concomitant]
  7. GAS-X W/MAALOX [Concomitant]
  8. AVODART [Concomitant]

REACTIONS (1)
  - DEATH [None]
